FAERS Safety Report 9605306 (Version 1)
Quarter: 2013Q4

REPORT INFORMATION
  Report Type: Spontaneous
  Country: GB (occurrence: GB)
  Receive Date: 20131008
  Receipt Date: 20131008
  Transmission Date: 20140711
  Serious: Yes (Other)
  Sender: FDA-Public Use
  Company Number: GB-TEVA-436547ISR

PATIENT
  Age: 34 Year
  Sex: Female

DRUGS (12)
  1. GLIMEPIRIDE [Suspect]
     Indication: TYPE 2 DIABETES MELLITUS
     Dosage: 2 MILLIGRAM DAILY;
     Route: 048
     Dates: start: 20130802, end: 20130816
  2. OMEPRAZOLE [Suspect]
     Indication: REGURGITATION
     Dosage: 20 MILLIGRAM DAILY;
     Route: 048
     Dates: start: 20130806, end: 20130816
  3. CLOZARIL [Suspect]
     Indication: SCHIZOAFFECTIVE DISORDER
     Dosage: UNK
     Route: 048
     Dates: start: 20130702
  4. CLOZARIL [Suspect]
     Dosage: 400 MILLIGRAM DAILY;
     Route: 048
     Dates: start: 20130703
  5. CLOZARIL [Suspect]
     Dosage: 300 MILLIGRAM DAILY;
     Route: 048
  6. CLOZARIL [Suspect]
     Dosage: 400 MILLIGRAM DAILY;
     Route: 048
     Dates: end: 20130815
  7. OLANZAPINE [Concomitant]
     Dosage: UNK
  8. SODIUM VALPROATE [Concomitant]
     Indication: MOOD SWINGS
     Dosage: 1.5 GRAM DAILY;
     Route: 048
  9. METFORMIN [Concomitant]
     Indication: TYPE 2 DIABETES MELLITUS
     Dosage: 2 GRAM DAILY;
     Route: 048
  10. LAXIDE [Concomitant]
     Indication: CONSTIPATION
     Dosage: UNK
  11. BECLOMETHASONE DIPROPIONATE [Concomitant]
     Dosage: UNK
  12. PROMETHAZINE [Concomitant]
     Indication: INSOMNIA
     Dosage: 150 MILLIGRAM DAILY;
     Route: 048
     Dates: start: 20130516

REACTIONS (6)
  - Alanine aminotransferase increased [Recovering/Resolving]
  - Antipsychotic drug level increased [Not Recovered/Not Resolved]
  - Differential white blood cell count abnormal [Unknown]
  - Dizziness [Recovering/Resolving]
  - Eosinophil count increased [Unknown]
  - Nausea [Recovering/Resolving]
